FAERS Safety Report 7958066-8 (Version None)
Quarter: 2011Q4

REPORT INFORMATION
  Report Type: 
  Country: None (occurrence: None)
  Receive Date: 20111205
  Receipt Date: 20111129
  Transmission Date: 20120403
  Serious: Yes (Life-Threatening, Other)
  Sender: FDA-Public Use
  Company Number: IE-ASTRAZENECA-2011SE70449

PATIENT
  Age: 28092 Day
  Sex: Female
  Weight: 65 kg

DRUGS (4)
  1. VIMOVO [Suspect]
     Indication: ARTHRALGIA
     Dosage: 500 MG/20MG ONE TABLET EVERY OTHER DAY
     Route: 048
     Dates: end: 20111015
  2. ALDACTONE [Concomitant]
     Route: 048
     Dates: end: 20111015
  3. AMINOPHYLLINE [Concomitant]
     Route: 048
  4. LASIX [Concomitant]
     Indication: OEDEMA
     Route: 048
     Dates: end: 20111015

REACTIONS (1)
  - RENAL FAILURE ACUTE [None]
